FAERS Safety Report 13659266 (Version 1)
Quarter: 2017Q2

REPORT INFORMATION
  Report Type: Spontaneous
  Country: US (occurrence: US)
  Receive Date: 20170616
  Receipt Date: 20170616
  Transmission Date: 20170830
  Serious: Yes (Hospitalization)
  Sender: FDA-Public Use
  Company Number: None

PATIENT
  Age: 76 Year
  Sex: Female
  Weight: 94 kg

DRUGS (10)
  1. PROTONIX [Concomitant]
     Active Substance: PANTOPRAZOLE SODIUM
  2. HYDRALAZINE [Concomitant]
     Active Substance: HYDRALAZINE HYDROCHLORIDE
  3. ECOTRIN [Concomitant]
     Active Substance: ASPIRIN
  4. APAP [Concomitant]
     Active Substance: ACETAMINOPHEN
  5. PREDNISONE. [Concomitant]
     Active Substance: PREDNISONE
  6. ENOXAPARIN [Concomitant]
     Active Substance: ENOXAPARIN
  7. BRILINTA [Concomitant]
     Active Substance: TICAGRELOR
  8. MOBIC [Concomitant]
     Active Substance: MELOXICAM
  9. ZOFRAN [Suspect]
     Active Substance: ONDANSETRON HYDROCHLORIDE
     Indication: NAUSEA
     Dosage: DATES OF USE - RECENT?FREQUENCY - Q8HRS PRN X 1
     Route: 048
  10. KCL [Concomitant]
     Active Substance: POTASSIUM CHLORIDE

REACTIONS (5)
  - Injection site pruritus [None]
  - Chills [None]
  - Dyspnoea [None]
  - Flushing [None]
  - Dry mouth [None]

NARRATIVE: CASE EVENT DATE: 20170502
